FAERS Safety Report 7464901-2 (Version None)
Quarter: 2011Q2

REPORT INFORMATION
  Report Type: 
  Country: None (occurrence: None)
  Receive Date: 20110509
  Receipt Date: 20110228
  Transmission Date: 20111010
  Serious: Yes (Other)
  Sender: FDA-Public Use
  Company Number: US-BAYER-2010-006295

PATIENT
  Age: 24 Year
  Sex: Female
  Weight: 62.585 kg

DRUGS (13)
  1. YASMIN [Suspect]
     Indication: ORAL CONTRACEPTION
     Dosage: UNK UNK, QD
     Route: 048
     Dates: start: 20070224, end: 20080818
  2. YASMIN [Suspect]
     Indication: ACNE
     Dosage: UNK UNK, QD
     Dates: start: 20081215, end: 20081218
  3. FLEXERIL [Concomitant]
     Dosage: 10 MG, TID
     Route: 048
     Dates: start: 20070301, end: 20080107
  4. DROSPIRENONE AND ETHINYL ESTRADIOL [Suspect]
     Indication: ACNE
  5. NAPROXEN (ALEVE) [Concomitant]
     Indication: PAIN
     Dosage: 2 PILLS, BID
  6. DUAC [Concomitant]
     Indication: ACNE
     Dosage: DAILY DOSE 45 MG
     Route: 061
     Dates: start: 20070224, end: 20070915
  7. ZOLOFT [Concomitant]
     Indication: ANXIETY
  8. DROSPIRENONE AND ETHINYL ESTRADIOL [Suspect]
     Indication: ORAL CONTRACEPTION
     Dosage: UNK UNK, QD
     Route: 048
     Dates: start: 20080819, end: 20081214
  9. YAZ [Suspect]
     Indication: PRODUCT USED FOR UNKNOWN INDICATION
  10. MINOCYCLINE [Concomitant]
     Dosage: 100 MG, BID
     Route: 048
     Dates: start: 20070312, end: 20080101
  11. NAPROSYN [Concomitant]
     Dosage: 500 MG, BID
     Route: 048
     Dates: start: 20080819, end: 20081028
  12. LORAZEPAM [Concomitant]
     Indication: ANXIETY
  13. ZOLOFT [Concomitant]
     Indication: DYSPNOEA
     Dosage: UNK
     Dates: start: 20090821

REACTIONS (2)
  - PULMONARY EMBOLISM [None]
  - DEEP VEIN THROMBOSIS [None]
